FAERS Safety Report 15464964 (Version 10)
Quarter: 2019Q4

REPORT INFORMATION
  Report Type: Report from Study
  Country: AT (occurrence: AT)
  Receive Date: 20181004
  Receipt Date: 20191113
  Transmission Date: 20200122
  Serious: Yes (Other)
  Sender: FDA-Public Use
  Company Number: PHHY2018AT110034

PATIENT
  Age: 67 Year
  Sex: Female
  Weight: 83 kg

DRUGS (14)
  1. DABRAFENIB [Suspect]
     Active Substance: DABRAFENIB
     Indication: MALIGNANT MELANOMA
     Dosage: 300 MG, UNK
     Route: 048
     Dates: start: 201808, end: 20180917
  2. DABRAFENIB [Suspect]
     Active Substance: DABRAFENIB
     Dosage: 150 MG, UNK
     Route: 048
     Dates: start: 20181224, end: 20190102
  3. DABRAFENIB [Suspect]
     Active Substance: DABRAFENIB
     Dosage: 150 MG, UNK
     Route: 048
     Dates: start: 20190103, end: 20190123
  4. DABRAFENIB [Suspect]
     Active Substance: DABRAFENIB
     Dosage: 75 MG, UNK
     Route: 048
     Dates: start: 20190704
  5. MEKINIST [Suspect]
     Active Substance: TRAMETINIB DIMETHYL SULFOXIDE
     Indication: MALIGNANT MELANOMA
     Dosage: 2 MG, UNK
     Route: 048
     Dates: start: 201808, end: 20180917
  6. MEKINIST [Suspect]
     Active Substance: TRAMETINIB DIMETHYL SULFOXIDE
     Dosage: 1 MG, UNK
     Route: 048
     Dates: start: 20190103, end: 20190123
  7. DABRAFENIB [Suspect]
     Active Substance: DABRAFENIB
     Dosage: 150 MG, UNK
     Route: 048
     Dates: start: 20180928, end: 20181115
  8. DABRAFENIB [Suspect]
     Active Substance: DABRAFENIB
     Dosage: 75 MG, UNK
     Route: 048
     Dates: start: 20190207, end: 20190612
  9. MEKINIST [Suspect]
     Active Substance: TRAMETINIB DIMETHYL SULFOXIDE
     Dosage: 1 MG, UNK
     Route: 048
     Dates: start: 20190704
  10. MEKINIST [Suspect]
     Active Substance: TRAMETINIB DIMETHYL SULFOXIDE
     Dosage: 2 MG, UNK
     Route: 048
     Dates: start: 20181224, end: 20190102
  11. MEKINIST [Suspect]
     Active Substance: TRAMETINIB DIMETHYL SULFOXIDE
     Dosage: 2 MG, UNK
     Route: 048
     Dates: start: 20181123, end: 20181210
  12. MEKINIST [Suspect]
     Active Substance: TRAMETINIB DIMETHYL SULFOXIDE
     Dosage: 2 MG, UNK
     Route: 048
     Dates: start: 20180928, end: 20181115
  13. MEKINIST [Suspect]
     Active Substance: TRAMETINIB DIMETHYL SULFOXIDE
     Dosage: 1 MG, UNK
     Route: 048
     Dates: start: 20190207, end: 20190612
  14. DABRAFENIB [Suspect]
     Active Substance: DABRAFENIB
     Dosage: 150 MG, UNK
     Route: 048
     Dates: start: 20181123, end: 20181210

REACTIONS (14)
  - Decreased appetite [Recovered/Resolved]
  - Dizziness [Recovered/Resolved]
  - Blood creatine phosphokinase increased [Recovered/Resolved]
  - Weight decreased [Recovered/Resolved]
  - Blood creatine phosphokinase increased [Not Recovered/Not Resolved]
  - Blood cholesterol increased [Not Recovered/Not Resolved]
  - Hypokalaemia [Recovered/Resolved]
  - Diarrhoea [Recovered/Resolved]
  - Pruritus [Recovered/Resolved]
  - Rash macular [Not Recovered/Not Resolved]
  - Pancreatitis [Recovered/Resolved]
  - Metastases to central nervous system [Unknown]
  - Headache [Not Recovered/Not Resolved]
  - Blood triglycerides increased [Unknown]

NARRATIVE: CASE EVENT DATE: 20180822
